FAERS Safety Report 4440594-3 (Version None)
Quarter: 2004Q3

REPORT INFORMATION
  Report Type: 
  Country: None (occurrence: None)
  Receive Date: 20040901
  Receipt Date: 20040901
  Transmission Date: 20050211
  Serious: Yes (Hospitalization)
  Sender: FDA-Public Use
  Company Number: None

PATIENT
  Sex: Female
  Weight: 65.7716 kg

DRUGS (7)
  1. HUMALOG MIX 75/25 [Suspect]
     Indication: DIABETES MELLITUS
     Dosage: 25 UNITS AM 12 UNITS PM [PRIOR TO ADMISSION]
  2. DEMADEX [Concomitant]
  3. PRILOSEC [Concomitant]
  4. DIGOXIN [Concomitant]
  5. SYNTHROID [Concomitant]
  6. ENALAPRIL [Concomitant]
  7. COUMADIN [Concomitant]

REACTIONS (1)
  - HYPOGLYCAEMIA [None]
